FAERS Safety Report 9700675 (Version 1)
Quarter: 2013Q4

REPORT INFORMATION
  Report Type: Report from Study
  Country: NL (occurrence: NL)
  Receive Date: 20131121
  Receipt Date: 20131121
  Transmission Date: 20140711
  Serious: Yes (Hospitalization)
  Sender: FDA-Public Use
  Company Number: PHHY2013NL131954

PATIENT
  Sex: 0

DRUGS (2)
  1. CGS 20267 [Suspect]
     Indication: BREAST CANCER
     Dosage: 2.5 MG, DAILY
     Route: 048
     Dates: start: 20100223
  2. RADIOTHERAPY [Concomitant]

REACTIONS (2)
  - Ileus [Recovered/Resolved]
  - Constipation [Recovered/Resolved]
